FAERS Safety Report 21669685 (Version 2)
Quarter: 2022Q4

REPORT INFORMATION
  Report Type: Report from Study
  Country: US (occurrence: US)
  Receive Date: 20221201
  Receipt Date: 20221202
  Transmission Date: 20230112
  Serious: No
  Sender: FDA-Public Use
  Company Number: US-ABBVIE-4189016

PATIENT
  Age: 58 Year
  Sex: Male

DRUGS (5)
  1. HUMIRA [Suspect]
     Active Substance: ADALIMUMAB
     Indication: Ankylosing spondylitis
     Dosage: 40 MG
     Route: 058
  2. Diclofenac sodium. [Concomitant]
     Indication: Product used for unknown indication
  3. PFIZER-BIONTECH COVID-19 VACCINE [Concomitant]
     Active Substance: TOZINAMERAN
     Indication: COVID-19 immunisation
     Dosage: 3RD DOSE/BOOSTER DOSE
     Route: 030
     Dates: start: 20210918, end: 20210918
  4. PFIZER-BIONTECH COVID-19 VACCINE [Concomitant]
     Active Substance: TOZINAMERAN
     Indication: COVID-19 immunisation
     Dosage: 1ST DOSE
     Route: 030
     Dates: start: 20210403, end: 20210403
  5. PFIZER-BIONTECH COVID-19 VACCINE [Concomitant]
     Active Substance: TOZINAMERAN
     Indication: COVID-19 immunisation
     Dosage: 2ND DOSE
     Route: 030
     Dates: start: 20210424, end: 20210424

REACTIONS (14)
  - Gastrointestinal disorder [Unknown]
  - Skin atrophy [Unknown]
  - Chest pain [Unknown]
  - Influenza [Unknown]
  - Skin fissures [Unknown]
  - Stress [Unknown]
  - Muscle spasms [Unknown]
  - Exposure to SARS-CoV-2 [Unknown]
  - Ankylosing spondylitis [Unknown]
  - Abdominal pain upper [Unknown]
  - Pruritus [Unknown]
  - Skin exfoliation [Unknown]
  - Skin burning sensation [Unknown]
  - Malaise [Unknown]

NARRATIVE: CASE EVENT DATE: 20221101
